FAERS Safety Report 10376598 (Version 2)
Quarter: 2014Q3

REPORT INFORMATION
  Report Type: Spontaneous
  Country: US (occurrence: None)
  Receive Date: 20140807
  Receipt Date: 20140908
  Transmission Date: 20150326
  Serious: Yes (Life-Threatening, Hospitalization, Other)
  Sender: FDA-Public Use
  Company Number: 2014SGN00929

PATIENT
  Age: 88 Year
  Sex: Female

DRUGS (1)
  1. ADCETRIS [Suspect]
     Active Substance: BRENTUXIMAB VEDOTIN
     Indication: ANAPLASTIC LARGE CELL LYMPHOMA T- AND NULL-CELL TYPES
     Route: 042
     Dates: start: 20140211, end: 20140528

REACTIONS (4)
  - Platelet count decreased [None]
  - Thrombocytopenia [None]
  - Haemorrhage [None]
  - Off label use [None]

NARRATIVE: CASE EVENT DATE: 20140211
